FAERS Safety Report 21559254 (Version 1)
Quarter: 2022Q4

REPORT INFORMATION
  Report Type: Spontaneous
  Country: US (occurrence: US)
  Receive Date: 20221107
  Receipt Date: 20221107
  Transmission Date: 20230112
  Serious: No
  Sender: FDA-Public Use
  Company Number: US-TAKEDA-2022TUS082148

PATIENT
  Sex: Female
  Weight: 56 kg

DRUGS (2)
  1. MOTEGRITY [Suspect]
     Active Substance: PRUCALOPRIDE SUCCINATE
     Indication: Constipation
     Dosage: 2 MILLIGRAM
     Route: 065
     Dates: start: 20221025
  2. VITAMIN D [Concomitant]
     Active Substance: VITAMIN D NOS
     Indication: Supplementation therapy
     Route: 065

REACTIONS (4)
  - Paranasal sinus discomfort [Recovered/Resolved]
  - Ear pain [Recovered/Resolved]
  - Sinus pain [Recovered/Resolved]
  - Product use issue [Recovered/Resolved]
